FAERS Safety Report 6165965-9 (Version None)
Quarter: 2009Q2

REPORT INFORMATION
  Report Type: 
  Country: None (occurrence: None)
  Receive Date: 20090422
  Receipt Date: 20090323
  Transmission Date: 20091009
  Serious: Yes (Disabling)
  Sender: FDA-Public Use
  Company Number: 2009S1005033

PATIENT
  Age: 65 Year
  Sex: Male

DRUGS (8)
  1. LITHIUM CARBONATE [Suspect]
     Dosage: 600 MG;TWICE A DAY;ORAL
     Route: 048
  2. DOXEPIN HYDROCHLORIDE [Suspect]
     Dosage: 25 MG;3 TIMES A DAY
  3. CLONAZEPAM [Suspect]
     Dosage: 1 MG;TWICE A DAY;ORAL
     Route: 048
  4. NAPROXEN [Suspect]
     Dosage: 220 MG;DAILY
  5. RIVASTIGMINE TARTRATE [Suspect]
     Indication: MEMORY IMPAIRMENT
     Dosage: 3 MG;TWICE A DAY;ORAL
     Route: 048
  6. ATORVASTATIN [Concomitant]
  7. METOPROLOL SUCCINATE [Concomitant]
  8. ASPIRIN [Concomitant]

REACTIONS (8)
  - AMNESIA [None]
  - COGNITIVE DISORDER [None]
  - CONFUSIONAL STATE [None]
  - DISORIENTATION [None]
  - FATIGUE [None]
  - MINI MENTAL STATUS EXAMINATION ABNORMAL [None]
  - MOTOR DYSFUNCTION [None]
  - WHEELCHAIR USER [None]
